FAERS Safety Report 13568619 (Version 1)
Quarter: 2017Q2

REPORT INFORMATION
  Report Type: Spontaneous
  Country: US (occurrence: US)
  Receive Date: 20170522
  Receipt Date: 20170522
  Transmission Date: 20170830
  Serious: Yes (Hospitalization)
  Sender: FDA-Public Use
  Company Number: None

PATIENT
  Age: 95 Year
  Sex: Male
  Weight: 90.27 kg

DRUGS (1)
  1. MIRTAZAPINE 15MG ODT TABLETS, 15MG [Suspect]
     Active Substance: MIRTAZAPINE
     Indication: INCREASED APPETITE
     Route: 048
     Dates: start: 20170513, end: 20170513

REACTIONS (3)
  - Change in sustained attention [None]
  - Dysarthria [None]
  - Cognitive disorder [None]

NARRATIVE: CASE EVENT DATE: 20170513
